FAERS Safety Report 15813060 (Version 1)
Quarter: 2019Q1

REPORT INFORMATION
  Report Type: Spontaneous
  Country: CN (occurrence: CN)
  Receive Date: 20190111
  Receipt Date: 20190111
  Transmission Date: 20190417
  Serious: Yes (Hospitalization, Other)
  Sender: FDA-Public Use
  Company Number: CN-PFIZER INC-2019009142

PATIENT
  Age: 62 Year
  Sex: Male

DRUGS (5)
  1. CYCLOPHOSPHAMIDE. [Suspect]
     Active Substance: CYCLOPHOSPHAMIDE
     Indication: B-CELL LYMPHOMA
     Dosage: 1000 MG, CYCLIC (ON DAY 1; WITH 21 DAYS AS A CYCLE)
     Route: 041
     Dates: end: 20170112
  2. EPIRUBICIN HCL [Suspect]
     Active Substance: EPIRUBICIN HYDROCHLORIDE
     Indication: B-CELL LYMPHOMA
     Dosage: 80 MG, CYCLIC (ON DAY 1; WITH 21 DAYS AS A CYCLE)
     Route: 041
     Dates: end: 20170112
  3. RITUXIMAB. [Suspect]
     Active Substance: RITUXIMAB
     Indication: B-CELL LYMPHOMA
     Dosage: 600 MG, CYCLIC (ON DAY 1; WITH 21 DAYS AS A CYCLE)
     Route: 041
     Dates: end: 20170112
  4. VINCRISTINE [Suspect]
     Active Substance: VINCRISTINE
     Indication: B-CELL LYMPHOMA
     Dosage: 2 MG, CYCLIC(ON DAY 1; WITH 21 DAYS AS A CYCLE)
     Route: 041
     Dates: end: 20170112
  5. PREDNISONE. [Suspect]
     Active Substance: PREDNISONE
     Indication: B-CELL LYMPHOMA
     Dosage: 100 MG, CYCLIC(ON DAY 1~5; WITH 21 DAYS AS A CYCLE)
     Route: 048
     Dates: end: 20170116

REACTIONS (1)
  - Interstitial lung disease [Recovering/Resolving]

NARRATIVE: CASE EVENT DATE: 20170123
